FAERS Safety Report 9421059 (Version 1)
Quarter: 2013Q3

REPORT INFORMATION
  Report Type: Spontaneous
  Country: FR (occurrence: FR)
  Receive Date: 20130725
  Receipt Date: 20130725
  Transmission Date: 20140515
  Serious: Yes (Hospitalization)
  Sender: FDA-Public Use
  Company Number: FR-ROXANE LABORATORIES, INC.-2013-RO-01213RO

PATIENT
  Age: 74 Year
  Sex: Female

DRUGS (2)
  1. ALPRAZOLAM INTENSOL [ORAL SOLUTION (CONCENTRATE)] 1 MG/ML [Suspect]
  2. XANAX [Suspect]

REACTIONS (2)
  - Fall [Recovered/Resolved]
  - Gait disturbance [Recovered/Resolved]
